FAERS Safety Report 16952076 (Version 2)
Quarter: 2019Q4

REPORT INFORMATION
  Report Type: Spontaneous
  Country: AU (occurrence: AU)
  Receive Date: 20191023
  Receipt Date: 20191028
  Transmission Date: 20200122
  Serious: No
  Sender: FDA-Public Use
  Company Number: AU-PFIZER INC-2019454364

PATIENT
  Age: 81 Year
  Sex: Male

DRUGS (2)
  1. SULFAMETHOXAZOLE/TRIMETHOPRIM [Suspect]
     Active Substance: SULFAMETHOXAZOLE\TRIMETHOPRIM
     Indication: BACTERIAL ABSCESS CENTRAL NERVOUS SYSTEM
     Dosage: 320/1600 MG, 2X/DAY
     Route: 042
  2. MEROPENEM. [Concomitant]
     Active Substance: MEROPENEM
     Indication: BACTERIAL ABSCESS CENTRAL NERVOUS SYSTEM
     Dosage: 2 G, 3X/DAY (2 G 8 HOURLY)

REACTIONS (1)
  - Drug resistance [Unknown]
